FAERS Safety Report 16665001 (Version 1)
Quarter: 2019Q3

REPORT INFORMATION
  Report Type: Report from Study
  Country: None (occurrence: US)
  Receive Date: 20190803
  Receipt Date: 20190803
  Transmission Date: 20191004
  Serious: Yes (Death)
  Sender: FDA-Public Use
  Company Number: US-ABBVIE-19K-163-2873511-00

PATIENT
  Age: 49 Year
  Sex: Male

DRUGS (1)
  1. VENCLEXTA [Suspect]
     Active Substance: VENETOCLAX
     Indication: LYMPHOCYTIC LEUKAEMIA
     Route: 048
     Dates: start: 20190715

REACTIONS (5)
  - Peripheral swelling [Fatal]
  - Decreased appetite [Unknown]
  - Diarrhoea [Unknown]
  - White blood cell count abnormal [Recovering/Resolving]
  - Joint swelling [Fatal]

NARRATIVE: CASE EVENT DATE: 201907
